FAERS Safety Report 20596859 (Version 1)
Quarter: 2022Q1

REPORT INFORMATION
  Report Type: Other
  Country: CA (occurrence: None)
  Receive Date: 20220315
  Receipt Date: 20220315
  Transmission Date: 20220424
  Serious: Yes (Other)
  Sender: FDA-Public Use
  Company Number: CA-ROCHE-2950786

PATIENT
  Sex: Female

DRUGS (1)
  1. ACTEMRA [Suspect]
     Active Substance: TOCILIZUMAB
     Indication: Rheumatoid arthritis
     Dosage: DRUG DOSE FIRST ADMINISTERED IS UNKNOWN MORE DOSAGE INFO IS NO PIRS AVAILABLE
     Route: 042
     Dates: start: 20191209

REACTIONS (4)
  - Arthritis infective [Unknown]
  - Ill-defined disorder [Unknown]
  - Arthropathy [Unknown]
  - Localised infection [Unknown]
